FAERS Safety Report 9552617 (Version 1)
Quarter: 2013Q3

REPORT INFORMATION
  Report Type: Spontaneous
  Country: US (occurrence: None)
  Receive Date: 20130923
  Receipt Date: 20130923
  Transmission Date: 20140515
  Serious: Yes (Other)
  Sender: FDA-Public Use
  Company Number: 2013SA090513

PATIENT
  Sex: Female

DRUGS (1)
  1. ICY HOT [Suspect]

REACTIONS (2)
  - Burning sensation [None]
  - Skin exfoliation [None]
